FAERS Safety Report 6741189-9 (Version None)
Quarter: 2010Q2

REPORT INFORMATION
  Report Type: 
  Country: None (occurrence: None)
  Receive Date: 20100524
  Receipt Date: 20100512
  Transmission Date: 20101027
  Serious: Yes (Death, Hospitalization)
  Sender: FDA-Public Use
  Company Number: 2009AC000374

PATIENT
  Age: 58 Year
  Sex: Female

DRUGS (43)
  1. DIGOXIN [Suspect]
     Dosage: 0.25 MG; PO
     Route: 048
     Dates: start: 20080101, end: 20080426
  2. DIGOXIN [Suspect]
     Indication: SUPRAVENTRICULAR TACHYCARDIA
     Dosage: .20 MG; QD; PO
     Route: 048
     Dates: start: 19951201, end: 20080101
  3. MOL-ITRON [Concomitant]
  4. THERAGRAN M [Concomitant]
  5. TYLOX [Concomitant]
  6. TYLENOL W/ CODEINE NO. 3 [Concomitant]
  7. LASIX [Concomitant]
  8. LISINOPRIL [Concomitant]
  9. CRESTOR [Concomitant]
  10. ASPIRIN [Concomitant]
  11. POTASSIUM CHLORIDE [Concomitant]
  12. PRILOSEC [Concomitant]
  13. PROPECIA [Concomitant]
  14. MULTI-VITAMIN [Concomitant]
  15. CALCIUM CARBONATE [Concomitant]
  16. VITAMIN C [Concomitant]
  17. VITAMIN D [Concomitant]
  18. GARLIC [Concomitant]
  19. FISH OIL [Concomitant]
  20. FOLIC ACID [Concomitant]
  21. COUMADIN [Concomitant]
  22. .............. [Concomitant]
  23. ........... [Concomitant]
  24. .............. [Concomitant]
  25. ............ [Concomitant]
  26. ................. [Concomitant]
  27. LANOXICAPS [Concomitant]
  28. PRILOSEC [Concomitant]
  29. COUMADIN [Concomitant]
  30. AZMACORT [Concomitant]
  31. SLO-BID [Concomitant]
  32. MICRO-K [Concomitant]
  33. ZESTRIL [Concomitant]
  34. PERCOCET [Concomitant]
  35. PREMARIN [Concomitant]
  36. RELAFEN [Concomitant]
  37. SELDANE [Concomitant]
  38. TAGAMET [Concomitant]
  39. ELAVIL [Concomitant]
  40. LIPITOR [Concomitant]
  41. POTASSIUM [Concomitant]
  42. MACRODANTIN [Concomitant]
  43. KENALOG [Concomitant]

REACTIONS (33)
  - ABDOMINAL PAIN UPPER [None]
  - AORTIC VALVE INCOMPETENCE [None]
  - ATRIAL TACHYCARDIA [None]
  - BUNDLE BRANCH BLOCK LEFT [None]
  - CARDIAC ARREST [None]
  - CAROTID ARTERY STENOSIS [None]
  - CEREBROVASCULAR ACCIDENT [None]
  - CONDITION AGGRAVATED [None]
  - CONFUSIONAL STATE [None]
  - DIARRHOEA [None]
  - GOUT [None]
  - HIATUS HERNIA [None]
  - HOT FLUSH [None]
  - HYPOXIA [None]
  - INTERNATIONAL NORMALISED RATIO INCREASED [None]
  - INTERVERTEBRAL DISC DEGENERATION [None]
  - INTERVERTEBRAL DISC PROTRUSION [None]
  - LEFT VENTRICULAR DYSFUNCTION [None]
  - LEFT VENTRICULAR HYPERTROPHY [None]
  - MITRAL VALVE INCOMPETENCE [None]
  - OEDEMA PERIPHERAL [None]
  - OESOPHAGEAL STENOSIS [None]
  - OXYGEN SATURATION DECREASED [None]
  - PAIN [None]
  - RESTLESSNESS [None]
  - ROTATOR CUFF SYNDROME [None]
  - SINUSITIS [None]
  - SPINAL OSTEOARTHRITIS [None]
  - SUDDEN CARDIAC DEATH [None]
  - THERAPEUTIC AGENT TOXICITY [None]
  - TRANSIENT ISCHAEMIC ATTACK [None]
  - TRICUSPID VALVE INCOMPETENCE [None]
  - VENTRICULAR DYSKINESIA [None]
